FAERS Safety Report 5633848-6 (Version None)
Quarter: 2008Q1

REPORT INFORMATION
  Report Type: 
  Country: None (occurrence: None)
  Receive Date: 20080219
  Receipt Date: 20080204
  Transmission Date: 20080703
  Serious: Yes (Hospitalization)
  Sender: FDA-Public Use
  Company Number: ADE2008-0124

PATIENT
  Age: 75 Year
  Sex: Male

DRUGS (5)
  1. SIMVASTATIN [Suspect]
     Indication: HYPERCHOLESTEROLAEMIA
     Dosage: 40 MG PO
     Route: 048
     Dates: start: 20071112
  2. AZATHIOPRINE [Concomitant]
  3. CO-CODAMOL [Concomitant]
  4. RAMIPRIL [Concomitant]
  5. WARFARIN SODIUM [Concomitant]

REACTIONS (1)
  - URINARY RETENTION [None]
